FAERS Safety Report 5646172-2 (Version None)
Quarter: 2008Q1

REPORT INFORMATION
  Report Type: 
  Country: None (occurrence: None)
  Receive Date: 20080131
  Receipt Date: 20071211
  Transmission Date: 20080703
  Serious: No
  Sender: FDA-Public Use
  Company Number: 163-21880-07120638

PATIENT
  Age: 64 Year
  Sex: Female
  Weight: 106.5953 kg

DRUGS (1)
  1. REVLIMID [Suspect]
     Indication: MULTIPLE MYELOMA
     Dosage: 20 MG, DAILY FOR 21 DAYS, ORAL
     Route: 048
     Dates: start: 20071011

REACTIONS (3)
  - ANAEMIA [None]
  - NEUTROPENIA [None]
  - WEIGHT DECREASED [None]
